FAERS Safety Report 15974638 (Version 1)
Quarter: 2019Q1

REPORT INFORMATION
  Report Type: Spontaneous
  Country: JP (occurrence: JP)
  Receive Date: 20190218
  Receipt Date: 20190218
  Transmission Date: 20190418
  Serious: Yes (Hospitalization)
  Sender: FDA-Public Use
  Company Number: JP-009507513-1902JPN000771J

PATIENT
  Age: 72 Year
  Sex: Male
  Weight: 42 kg

DRUGS (16)
  1. URSO [Concomitant]
     Active Substance: URSODIOL
     Dosage: UNK
     Route: 065
  2. FAMVIR [Concomitant]
     Active Substance: FAMCICLOVIR
     Dosage: UNK
     Route: 065
  3. ULTIBRO [Concomitant]
     Active Substance: GLYCOPYRRONIUM\INDACATEROL
     Dosage: UNK
     Route: 065
  4. KEYTRUDA [Suspect]
     Active Substance: PEMBROLIZUMAB
     Indication: LUNG NEOPLASM MALIGNANT
     Dosage: 200 MILLIGRAM, UNK
     Route: 041
     Dates: start: 20180810, end: 20180904
  5. SODIUM FERROUS CITRATE [Concomitant]
     Active Substance: SODIUM FERROUS CITRATE
     Dosage: UNK
     Route: 065
  6. NEXIUM [Concomitant]
     Active Substance: ESOMEPRAZOLE MAGNESIUM
     Dosage: UNK
     Route: 065
  7. ALLOID G [Concomitant]
     Active Substance: SODIUM ALGINATE
     Dosage: UNK
     Route: 065
  8. OLANZAPINE. [Concomitant]
     Active Substance: OLANZAPINE
     Dosage: UNK
     Route: 065
  9. OPSO [Concomitant]
     Active Substance: MORPHINE HYDROCHLORIDE
     Dosage: UNK
     Route: 065
  10. OXYCODONE [Concomitant]
     Active Substance: OXYCODONE
     Dosage: UNK
     Route: 065
  11. ZOMETA [Concomitant]
     Active Substance: ZOLEDRONIC ACID
     Dosage: UNK
     Route: 065
  12. CELECOX [Concomitant]
     Active Substance: CELECOXIB
     Dosage: UNK
     Route: 065
  13. SODIUM PICOSULFATE [Concomitant]
     Active Substance: SODIUM PICOSULFATE
     Dosage: UNK
     Route: 065
  14. KEYTRUDA [Suspect]
     Active Substance: PEMBROLIZUMAB
     Dosage: 200 MILLIGRAM, UNKNOWN
     Route: 041
     Dates: start: 20181203
  15. CALONAL [Concomitant]
     Active Substance: ACETAMINOPHEN
     Dosage: UNK
     Route: 065
  16. SYMPROIC [Concomitant]
     Active Substance: NALDEMEDINE
     Dosage: UNK
     Route: 065

REACTIONS (2)
  - Laryngeal inflammation [Recovering/Resolving]
  - Pharyngeal inflammation [Recovering/Resolving]

NARRATIVE: CASE EVENT DATE: 20180904
